FAERS Safety Report 12535954 (Version 2)
Quarter: 2016Q3

REPORT INFORMATION
  Report Type: Spontaneous
  Country: GB (occurrence: GB)
  Receive Date: 20160707
  Receipt Date: 20160711
  Transmission Date: 20161109
  Serious: Yes (Death, Hospitalization, Other)
  Sender: FDA-Public Use
  Company Number: GB-AMGEN-GBRSP2016086173

PATIENT
  Age: 80 Year
  Sex: Male

DRUGS (1)
  1. ARANESP [Suspect]
     Active Substance: DARBEPOETIN ALFA
     Indication: PRODUCT USED FOR UNKNOWN INDICATION
     Dosage: 60 MUG, UNK
     Route: 065

REACTIONS (5)
  - Emotional disorder [Unknown]
  - General physical condition abnormal [Unknown]
  - Death [Fatal]
  - Hospitalisation [Unknown]
  - Agitation [Unknown]

NARRATIVE: CASE EVENT DATE: 20160706
